FAERS Safety Report 20808041 (Version 1)
Quarter: 2022Q2

REPORT INFORMATION
  Report Type: Spontaneous
  Country: GB (occurrence: GB)
  Receive Date: 20220510
  Receipt Date: 20220510
  Transmission Date: 20220721
  Serious: Yes (Death, Life-Threatening, Hospitalization, Disabling, Other)
  Sender: FDA-Public Use
  Company Number: GB-Crescent Pharma Limited-AG202203-000048

PATIENT
  Age: 47 Year
  Sex: Female

DRUGS (29)
  1. AMLODIPINE [Suspect]
     Active Substance: AMLODIPINE BESYLATE
     Indication: Hypertension
     Dosage: 100 MILLIGRAM DAILY; THERAPY DURATION : 1 DAYS
     Route: 048
     Dates: start: 20180928, end: 20180928
  2. EZETIMIBE [Suspect]
     Active Substance: EZETIMIBE
     Indication: Blood cholesterol increased
     Dosage: 10 MILLIGRAM DAILY;
     Route: 048
     Dates: end: 20180928
  3. FELODIPINE [Suspect]
     Active Substance: FELODIPINE
     Indication: Hypertension
     Dosage: 100 MG PER DAY
     Route: 048
     Dates: end: 20180928
  4. LANSOPRAZOLE [Suspect]
     Active Substance: LANSOPRAZOLE
     Indication: Gastrooesophageal reflux disease
     Dosage: 30 MILLIGRAM DAILY;
     Route: 065
     Dates: end: 20180928
  5. LANSOPRAZOLE [Suspect]
     Active Substance: LANSOPRAZOLE
     Indication: Blood cholesterol increased
     Dosage: 30 MILLIGRAM DAILY;
     Route: 065
     Dates: end: 20180928
  6. LANSOPRAZOLE [Suspect]
     Active Substance: LANSOPRAZOLE
     Indication: Gastrooesophageal reflux disease
     Dosage: 40 MILLIGRAM DAILY;
     Route: 048
  7. LOSARTAN POTASSIUM [Suspect]
     Active Substance: LOSARTAN POTASSIUM
     Indication: Schizophrenia
     Dosage: 100 MILLIGRAM DAILY; THERAPY DURATION : 561 DAYS
     Route: 048
     Dates: end: 20180928
  8. LOSARTAN POTASSIUM [Suspect]
     Active Substance: LOSARTAN POTASSIUM
     Indication: Hypertension
     Dosage: 200 MILLIGRAM DAILY; THERAPY DURATION : 561 DAYS
     Route: 048
     Dates: start: 20170317, end: 20180928
  9. LOSARTAN [Suspect]
     Active Substance: LOSARTAN
     Indication: Hypertension
     Dosage: 100 MILLIGRAM DAILY;
     Route: 048
     Dates: end: 20180928
  10. LOSARTAN [Suspect]
     Active Substance: LOSARTAN
     Indication: Schizophrenia
  11. PRAVASTATIN [Suspect]
     Active Substance: PRAVASTATIN
     Indication: Blood cholesterol increased
     Dosage: 40 MILLIGRAM DAILY; (40 MG, QD PM QHS)
     Route: 048
  12. PRAVASTATIN [Suspect]
     Active Substance: PRAVASTATIN
     Indication: Blood cholesterol increased
     Dosage: 40 MILLIGRAM DAILY; 40 MG, QD M QHS
     Route: 048
  13. PRAVASTATIN [Suspect]
     Active Substance: PRAVASTATIN
     Indication: Depression
     Dosage: 40 MILLIGRAM DAILY;  (40 MG, PM, QHS)
     Route: 048
  14. PRAVASTATIN [Suspect]
     Active Substance: PRAVASTATIN
     Dosage: 50 MILLIGRAM DAILY;
     Route: 048
     Dates: start: 201709
  15. PRAVASTATIN [Suspect]
     Active Substance: PRAVASTATIN
     Dosage: 40 MILLIGRAM DAILY;
     Route: 048
  16. SERTRALINE [Suspect]
     Active Substance: SERTRALINE HYDROCHLORIDE
     Indication: Depression
     Dosage: 50 MILLIGRAM DAILY; (50 MG, QD, AM),THERAPY DURATION : 1 YEAR
     Route: 048
     Dates: start: 201709, end: 20180928
  17. CLOZAPINE [Suspect]
     Active Substance: CLOZAPINE
     Indication: Schizophrenia
     Dosage: 200 MILLIGRAM DAILY; THERAPY DURATION : 561 DAYS
     Route: 048
     Dates: start: 20170317, end: 20180928
  18. CLOZAPINE [Suspect]
     Active Substance: CLOZAPINE
     Dosage: 200 MILLIGRAM DAILY; (PM), THERAPY DURATION : 561 DAYS
     Route: 048
     Dates: start: 20170317, end: 20180928
  19. CLOZAPINE [Suspect]
     Active Substance: CLOZAPINE
     Dosage: 100 MILLIGRAM DAILY;
     Route: 048
     Dates: start: 20180928, end: 20180928
  20. CLOZARIL [Suspect]
     Active Substance: CLOZAPINE
     Indication: Schizophrenia
     Dosage: 200 MILLIGRAM DAILY;  (200 MG, PM, 1 DAY),THERAPY DURATION : 561 DAYS
     Route: 048
     Dates: start: 20170317, end: 20180928
  21. CLOZARIL [Suspect]
     Active Substance: CLOZAPINE
     Indication: Blood cholesterol increased
     Dosage: 10 MILLIGRAM DAILY;
     Route: 048
     Dates: end: 20180928
  22. HUMALOG [Suspect]
     Active Substance: INSULIN LISPRO
     Indication: Diabetes mellitus
     Dosage: 60 IU, TID
     Route: 048
     Dates: end: 20180928
  23. HUMALOG [Suspect]
     Active Substance: INSULIN LISPRO
     Dosage: 360 IU (INTERNATIONAL UNIT) DAILY;
     Route: 048
     Dates: end: 20180928
  24. HUMALOG [Suspect]
     Active Substance: INSULIN LISPRO
     Dosage: 180 IU (INTERNATIONAL UNIT) DAILY;
     Route: 048
     Dates: end: 20180928
  25. HUMALOG [Suspect]
     Active Substance: INSULIN LISPRO
     Dosage: 360 IU (INTERNATIONAL UNIT) DAILY;
     Route: 048
     Dates: end: 20180928
  26. INSULIN LISPRO [Suspect]
     Active Substance: INSULIN LISPRO
     Indication: Diabetes mellitus
     Dosage: 120 IU, TID,60 IU ALSO RECEIVED,HUMALOG MIX 50
     Route: 048
     Dates: end: 20180928
  27. INSULIN LISPRO [Suspect]
     Active Substance: INSULIN LISPRO
     Dosage: 180 INTERNATIONAL UNITS, TID/ 60 IU, TID HUMALOG MIX 50
     Route: 048
     Dates: end: 20180928
  28. INSULIN LISPRO [Suspect]
     Active Substance: INSULIN LISPRO
     Dosage: 360 IU (INTERNATIONAL UNIT) DAILY; HUMALOG MIX 50
     Route: 048
     Dates: end: 20180928
  29. INSULIN LISPRO [Suspect]
     Active Substance: INSULIN LISPRO
     Dosage: 1080 IU (INTERNATIONAL UNIT) DAILY; HUMALOG MIX 50
     Route: 048
     Dates: end: 20180928

REACTIONS (8)
  - Loss of consciousness [Fatal]
  - Pneumonia [Fatal]
  - Multiple organ dysfunction syndrome [Fatal]
  - Incorrect route of product administration [Fatal]
  - Medication error [Fatal]
  - Off label use [Fatal]
  - Intentional product misuse [Fatal]
  - Overdose [Fatal]

NARRATIVE: CASE EVENT DATE: 20180101
